FAERS Safety Report 4263800-7 (Version None)
Quarter: 2004Q1

REPORT INFORMATION
  Report Type: 
  Country: None (occurrence: None)
  Receive Date: 20040102
  Receipt Date: 20031216
  Transmission Date: 20041129
  Serious: Yes (Other)
  Sender: FDA-Public Use
  Company Number: USA031254841

PATIENT
  Age: 75 Year
  Sex: Female

DRUGS (6)
  1. EVISTA [Suspect]
     Indication: OSTEOPOROSIS
     Dosage: 1 DSG FORM/DAY
  2. FOSAMAX [Concomitant]
  3. CALCIUM [Concomitant]
  4. VITAMIN D [Concomitant]
  5. VITAMIN E [Concomitant]
  6. VITAMIN A [Concomitant]

REACTIONS (3)
  - FEELING ABNORMAL [None]
  - SPINAL COMPRESSION FRACTURE [None]
  - STOMACH DISCOMFORT [None]
